FAERS Safety Report 10335006 (Version 2)
Quarter: 2014Q3

REPORT INFORMATION
  Report Type: Spontaneous
  Country: US (occurrence: US)
  Receive Date: 20140723
  Receipt Date: 20140924
  Transmission Date: 20150326
  Serious: Yes (Life-Threatening, Hospitalization)
  Sender: FDA-Public Use
  Company Number: US-BAYER-2014-109187

PATIENT
  Age: 19 Year
  Sex: Female

DRUGS (4)
  1. IBUPROFEN. [Concomitant]
     Active Substance: IBUPROFEN
     Dosage: 800 MG, EVERY 8 HOURS
     Route: 048
  2. MIRENA [Suspect]
     Active Substance: LEVONORGESTREL
     Indication: CONTRACEPTION
     Dosage: 20 MCG/24HR, CONT
     Route: 015
     Dates: start: 20130114, end: 20130305
  3. PRENATAL VITAMINS [Concomitant]
     Active Substance: VITAMINS
     Dosage: 1 TABLET DAILY
     Route: 048
  4. CALCIUM CARBONATE. [Concomitant]
     Active Substance: CALCIUM CARBONATE
     Dosage: 1250 MG, DAILY
     Route: 048

REACTIONS (15)
  - Device failure [None]
  - Abdominal pain [None]
  - Anhedonia [None]
  - Marital problem [None]
  - Painful defaecation [Not Recovered/Not Resolved]
  - Dyspareunia [Not Recovered/Not Resolved]
  - Scar [None]
  - Anxiety [None]
  - Uterine perforation [None]
  - Injury [None]
  - Emotional distress [None]
  - Infection [None]
  - General physical health deterioration [None]
  - Medical device discomfort [None]
  - Medical device pain [None]

NARRATIVE: CASE EVENT DATE: 20130305
